FAERS Safety Report 21691616 (Version 2)
Quarter: 2023Q1

REPORT INFORMATION
  Report Type: Spontaneous
  Country: US (occurrence: US)
  Receive Date: 20221207
  Receipt Date: 20230309
  Transmission Date: 20230417
  Serious: No
  Sender: FDA-Public Use
  Company Number: US-SA-SAC20221206000218

PATIENT
  Sex: Female

DRUGS (1)
  1. DUPIXENT [Suspect]
     Active Substance: DUPILUMAB
     Dosage: 300 MG, OTHER
     Route: 058

REACTIONS (5)
  - Eye discharge [Recovering/Resolving]
  - Headache [Not Recovered/Not Resolved]
  - Restlessness [Unknown]
  - Hair disorder [Unknown]
  - Dry eye [Recovering/Resolving]
